FAERS Safety Report 6567655-7 (Version None)
Quarter: 2010Q1

REPORT INFORMATION
  Report Type: 
  Country: None (occurrence: None)
  Receive Date: 20100203
  Receipt Date: 20100127
  Transmission Date: 20100710
  Serious: Yes (Hospitalization)
  Sender: FDA-Public Use
  Company Number: US-BIOGENIDEC-2009BI009536

PATIENT
  Age: 57 Year
  Sex: Female
  Weight: 74 kg

DRUGS (3)
  1. TYSABRI [Suspect]
     Indication: MULTIPLE SCLEROSIS
     Route: 042
     Dates: start: 20081117
  2. ZOLPIDEM TARTRATE [Concomitant]
  3. NAMENDA [Concomitant]
     Indication: TRIGEMINAL NEURALGIA
     Dates: end: 20090501

REACTIONS (16)
  - ABDOMINAL DISCOMFORT [None]
  - ASTHENIA [None]
  - COGNITIVE DISORDER [None]
  - DIZZINESS [None]
  - DYSGEUSIA [None]
  - FALL [None]
  - FATIGUE [None]
  - GAIT DISTURBANCE [None]
  - HEADACHE [None]
  - INSOMNIA [None]
  - MEMORY IMPAIRMENT [None]
  - SENSATION OF HEAVINESS [None]
  - SLUGGISHNESS [None]
  - SOMNOLENCE [None]
  - TRIGEMINAL NEURALGIA [None]
  - WEIGHT INCREASED [None]
